FAERS Safety Report 6381323-6 (Version None)
Quarter: 2009Q3

REPORT INFORMATION
  Report Type: 
  Country: None (occurrence: None)
  Receive Date: 20090923
  Receipt Date: 20090408
  Transmission Date: 20100115
  Serious: Yes (Other)
  Sender: FDA-Public Use
  Company Number: DSM-2009-00244

PATIENT
  Age: 78 Year
  Sex: Male

DRUGS (9)
  1. OLMESARTAN MEDOXOMIL [Suspect]
     Indication: HYPERTENSION
     Dosage: 10 MG, (10 MG, 1 IN 1 D), ORAL
     Route: 048
     Dates: start: 20090220
  2. ASPIRIN [Concomitant]
  3. CARDICOR (BUSOPROLOL FUMARATE) (BISOPROLOL FUMARATE) [Concomitant]
  4. CRESTOR (ROSUVASTATIN) (ROSUVASTATIN) [Concomitant]
  5. ELTROXIN (LEVOTHYROXINE SODIUM) (LEVOTHYROXINE SODIUM) [Concomitant]
  6. GLUCOPHAGE (METFORMIN (500 MILLIGRAM) (METFORMIN) [Concomitant]
  7. TAMSULOSIN (TAMSULOSIN) (TAMSULOSIN) [Concomitant]
  8. SENOKOT (SENNA ALEXANDRINA) (TABLET) (SENNA ALEXANDRINA) [Concomitant]
  9. SOLARAZE (DICLOFENAC SODIUM) (DICLOFENAC SODIUM) [Concomitant]

REACTIONS (2)
  - ATRIAL FIBRILLATION [None]
  - HYPOTENSION [None]
